FAERS Safety Report 25071682 (Version 1)
Quarter: 2025Q1

REPORT INFORMATION
  Report Type: Spontaneous
  Country: MY (occurrence: MY)
  Receive Date: 20250313
  Receipt Date: 20250313
  Transmission Date: 20250409
  Serious: Yes (Hospitalization)
  Sender: ROCHE
  Company Number: MY-002147023-NVSC2025MY038257

PATIENT
  Age: 41 Year
  Sex: Male

DRUGS (1)
  1. XOLAIR [Suspect]
     Active Substance: OMALIZUMAB
     Indication: Chronic rhinosinusitis with nasal polyps
     Dosage: 150 MG, Q4W (150MG X 3 JAB), (3 JAB / 4 WEEK )
     Route: 058
     Dates: start: 20240422, end: 20250212

REACTIONS (5)
  - Asthma [Unknown]
  - Anosmia [Unknown]
  - Upper-airway cough syndrome [Unknown]
  - Poor quality sleep [Unknown]
  - Drug ineffective [Unknown]

NARRATIVE: CASE EVENT DATE: 20241101
